FAERS Safety Report 5512407-X (Version None)
Quarter: 2007Q4

REPORT INFORMATION
  Report Type: 
  Country: None (occurrence: None)
  Receive Date: 20071107
  Receipt Date: 20071022
  Transmission Date: 20080405
  Serious: Yes (Disabling)
  Sender: FDA-Public Use
  Company Number: 2007S1010815

PATIENT
  Age: 58 Year
  Sex: Male

DRUGS (9)
  1. CITALOPRAM HYDROBROMIDE [Suspect]
     Indication: DRUG USE FOR UNKNOWN INDICATION
     Dosage: 20 MG DAILY ORAL
     Route: 048
     Dates: start: 20070927, end: 20071011
  2. AMITRIPTYLINE HCL [Concomitant]
  3. ATORVASTATIN CALCIUM [Concomitant]
  4. CODEINE SUL TAB [Concomitant]
  5. CO-DYDRAMOL [Concomitant]
  6. DICLOFENAC SODIUM [Concomitant]
  7. FYBOGEL [Concomitant]
  8. SENNA [Concomitant]
  9. SILDENAFIL CITRATE [Concomitant]

REACTIONS (1)
  - DEPRESSION [None]
